FAERS Safety Report 5753226-9 (Version None)
Quarter: 2008Q2

REPORT INFORMATION
  Report Type: 
  Country: None (occurrence: None)
  Receive Date: 20080527
  Receipt Date: 20080507
  Transmission Date: 20081010
  Serious: Yes (Life-Threatening, Hospitalization)
  Sender: FDA-Public Use
  Company Number: 2008-177029-NL

PATIENT
  Age: 82 Year
  Sex: Female

DRUGS (5)
  1. MIRTAZAPINE [Suspect]
     Indication: DEPRESSION
     Dosage: 30 MG
     Route: 048
     Dates: start: 20080320, end: 20080329
  2. MIRTAZAPINE [Suspect]
     Indication: MAJOR DEPRESSION
     Dosage: 30 MG
     Route: 048
     Dates: start: 20080320, end: 20080329
  3. SALMETEROL XINAFOATE [Concomitant]
  4. TIOTROPIUM BROMIDE [Concomitant]
  5. PRAZEPAM [Concomitant]

REACTIONS (4)
  - ACUTE RESPIRATORY FAILURE [None]
  - LOSS OF CONSCIOUSNESS [None]
  - OXYGEN SATURATION DECREASED [None]
  - SYNCOPE [None]
